FAERS Safety Report 6480969-4 (Version None)
Quarter: 2009Q4

REPORT INFORMATION
  Report Type: 
  Country: None (occurrence: None)
  Receive Date: 20091208
  Receipt Date: 20091124
  Transmission Date: 20100525
  Serious: Yes (Other)
  Sender: FDA-Public Use
  Company Number: GB-MYLANLABS-MK-6033831

PATIENT
  Age: 55 Year
  Sex: Female

DRUGS (2)
  1. FLUOXETINE [Suspect]
     Indication: DRUG USE FOR UNKNOWN INDICATION
     Route: 048
     Dates: start: 20070328, end: 20070412
  2. FERROUS SULFATE TAB [Concomitant]
     Indication: ANAEMIA
     Route: 048
     Dates: start: 20030101

REACTIONS (2)
  - ERYTHEMA [None]
  - SKIN DISORDER [None]
